FAERS Safety Report 18995240 (Version 1)
Quarter: 2021Q1

REPORT INFORMATION
  Report Type: Spontaneous
  Country: US (occurrence: US)
  Receive Date: 20210311
  Receipt Date: 20210311
  Transmission Date: 20210420
  Serious: No
  Sender: FDA-Public Use
  Company Number: US-B.I. PHARMACEUTICALS,INC./RIDGEFIELD-2021-BI-089324

PATIENT
  Age: 77 Year
  Sex: Male

DRUGS (2)
  1. SPIRIVA [Suspect]
     Active Substance: TIOTROPIUM BROMIDE MONOHYDRATE
     Indication: CHRONIC OBSTRUCTIVE PULMONARY DISEASE
     Dosage: 2 PUFFS FROM 1 CAPSULE DAILY
     Dates: start: 2020, end: 202101
  2. SPIRIVA [Suspect]
     Active Substance: TIOTROPIUM BROMIDE MONOHYDRATE
     Dosage: 2 PUFFS FROM 1 CAPSULE DAILY
     Dates: start: 202102

REACTIONS (2)
  - Product quality issue [Unknown]
  - Overdose [Unknown]

NARRATIVE: CASE EVENT DATE: 2020
